FAERS Safety Report 8004450-6 (Version None)
Quarter: 2011Q4

REPORT INFORMATION
  Report Type: 
  Country: None (occurrence: None)
  Receive Date: 20111223
  Receipt Date: 20111221
  Transmission Date: 20120403
  Serious: Yes (Other)
  Sender: FDA-Public Use
  Company Number: US-RB-031955-11

PATIENT
  Age: 90 Year
  Sex: Female

DRUGS (2)
  1. VERAPAMIL [Concomitant]
     Indication: CARDIAC FIBRILLATION
  2. MUCINEX DM [Suspect]
     Indication: LOWER RESPIRATORY TRACT INFECTION
     Dosage: TOOK A TOTAL OF 5 DOSES, 2 PILLS THE FIRST TIME AND 1 PILL EVERY 12 HOURS AFTER THAT.
     Route: 048
     Dates: start: 20111218

REACTIONS (2)
  - EPISTAXIS [None]
  - HYPERTENSION [None]
